FAERS Safety Report 16961660 (Version 1)
Quarter: 2019Q4

REPORT INFORMATION
  Report Type: Spontaneous
  Country: US (occurrence: US)
  Receive Date: 20190906
  Receipt Date: 20190906
  Transmission Date: 20200122
  Serious: No
  Sender: FDA-Public Use
  Company Number: None

PATIENT
  Age: 23 Year
  Sex: Female

DRUGS (1)
  1. LUPRON DEPOT [Suspect]
     Active Substance: LEUPROLIDE ACETATE
     Indication: ENDOMETRIOSIS
     Dosage: ?          OTHER DOSE:3.75;?
     Route: 030

REACTIONS (4)
  - Mood swings [None]
  - Hot flush [None]
  - Weight increased [None]
  - Feeling cold [None]

NARRATIVE: CASE EVENT DATE: 20190714
